FAERS Safety Report 9419379 (Version 3)
Quarter: 2013Q4

REPORT INFORMATION
  Report Type: Spontaneous
  Country: US (occurrence: US)
  Receive Date: 20130725
  Receipt Date: 20131028
  Transmission Date: 20140711
  Serious: No
  Sender: FDA-Public Use
  Company Number: US-ROXANE LABORATORIES, INC.-2013-RO-01156RO

PATIENT
  Age: 65 Year
  Sex: Female

DRUGS (3)
  1. PREDNISONE [Suspect]
     Indication: POLYMYOSITIS
     Dosage: 5 MG
     Route: 048
     Dates: start: 2005
  2. HIZENTRA [Concomitant]
     Route: 058
  3. FOLIC ACID [Concomitant]

REACTIONS (3)
  - Blood pressure increased [Recovered/Resolved]
  - Palpitations [Recovered/Resolved]
  - Product quality issue [Unknown]
